FAERS Safety Report 7486358-8 (Version None)
Quarter: 2011Q2

REPORT INFORMATION
  Report Type: 
  Country: None (occurrence: None)
  Receive Date: 20110517
  Receipt Date: 20110511
  Transmission Date: 20111010
  Serious: Yes (Disabling)
  Sender: FDA-Public Use
  Company Number: PHHY2011GB39495

PATIENT
  Age: 63 Year
  Sex: Female
  Weight: 64 kg

DRUGS (4)
  1. FLUOXETINE [Suspect]
     Indication: DEPRESSION
     Dosage: 20 MG, QD
     Route: 048
     Dates: start: 20110222, end: 20110415
  2. ESOMEPRAZOLE MAGNESIUM [Concomitant]
  3. SIMVASTATIN [Concomitant]
  4. MIRTAZAPINE [Concomitant]

REACTIONS (7)
  - CONDITION AGGRAVATED [None]
  - SKIN DISCOLOURATION [None]
  - DYSPNOEA [None]
  - FATIGUE [None]
  - PAIN [None]
  - HEADACHE [None]
  - ALLERGY TO ANIMAL [None]
